FAERS Safety Report 9596868 (Version 1)
Quarter: 2013Q4

REPORT INFORMATION
  Report Type: Spontaneous
  Country: FR (occurrence: FR)
  Receive Date: 20131004
  Receipt Date: 20131004
  Transmission Date: 20140711
  Serious: Yes (Other)
  Sender: FDA-Public Use
  Company Number: FR-ACTAVIS-2013-17172

PATIENT
  Age: 43 Year
  Sex: Male

DRUGS (4)
  1. DOCETAXEL (UNKNOWN) [Suspect]
     Indication: NEOPLASM OF THYMUS
     Dosage: UNK
     Route: 042
  2. CISPLATIN (UNKNOWN) [Suspect]
     Indication: NEOPLASM OF THYMUS
     Dosage: UNK
     Route: 042
  3. FLUOROURACIL (UNKNOWN) [Suspect]
     Indication: NEOPLASM OF THYMUS
     Dosage: UNK
     Route: 042
  4. AFLIBERCEPT [Suspect]
     Indication: NEOPLASM OF THYMUS
     Dosage: UNK
     Route: 042

REACTIONS (1)
  - Impaired healing [Recovered/Resolved]
